FAERS Safety Report 20058392 (Version 2)
Quarter: 2022Q1

REPORT INFORMATION
  Report Type: Spontaneous
  Country: US (occurrence: US)
  Receive Date: 20211111
  Receipt Date: 20220210
  Transmission Date: 20220423
  Serious: No
  Sender: FDA-Public Use
  Company Number: US-MORPHOSYS US-2021-MOR001236-US

PATIENT
  Age: 77 Year
  Sex: Male

DRUGS (4)
  1. MONJUVI [Suspect]
     Active Substance: TAFASITAMAB-CXIX
     Indication: Diffuse large B-cell lymphoma
  2. LENALIDOMIDE [Suspect]
     Active Substance: LENALIDOMIDE
     Indication: Diffuse large B-cell lymphoma
     Dosage: 25 MG, QD, DAYS 1-21 OF A 28 DAY CYCLE
     Route: 065
  3. LENALIDOMIDE [Suspect]
     Active Substance: LENALIDOMIDE
     Dosage: 20 MG
     Route: 065
  4. LENALIDOMIDE [Suspect]
     Active Substance: LENALIDOMIDE
     Dosage: 10 MG DAYS 1-21 ON A 28 DAY CYCLE

REACTIONS (5)
  - Platelet count decreased [Unknown]
  - Hypothyroidism [Unknown]
  - Fatigue [Unknown]
  - Asthenia [Unknown]
  - Depression [Unknown]
